FAERS Safety Report 11454040 (Version 2)
Quarter: 2015Q3

REPORT INFORMATION
  Report Type: Other
  Country: JP (occurrence: JP)
  Receive Date: 20150903
  Receipt Date: 20150923
  Transmission Date: 20151125
  Serious: Yes (Other)
  Sender: FDA-Public Use
  Company Number: JP-GUERBET LLC-1041609

PATIENT
  Age: 74 Year
  Sex: Female

DRUGS (2)
  1. LIPIODOL [Suspect]
     Active Substance: ETHIODIZED OIL
     Indication: THERAPEUTIC EMBOLISATION
     Route: 013
     Dates: start: 20150318, end: 20150318
  2. GELATIN [Concomitant]
     Active Substance: GELATIN
     Route: 013

REACTIONS (1)
  - Spinal cord infarction [Not Recovered/Not Resolved]
